FAERS Safety Report 7309874 (Version 7)
Quarter: 2018Q3

REPORT INFORMATION
  Report Type: Spontaneous
  Country: JP (occurrence: JP)
  Receive Date: 20100309
  Receipt Date: 20180924
  Transmission Date: 20181010
  Serious: Yes (Hospitalization, Other)
  Sender: FDA-Public Use
  Company Number: PHHY2009JP34758

PATIENT
  Age: 45 Year
  Sex: Female

DRUGS (9)
  1. PHOSBLOCK [Concomitant]
     Active Substance: FERRIC HYDROXIDE
     Indication: PROPHYLAXIS
     Dosage: 1300 MG, UNK
     Route: 048
  2. EURAX [Concomitant]
     Active Substance: CROTAMITON
     Indication: PRODUCT USED FOR UNKNOWN INDICATION
     Dosage: UNK
     Route: 061
  3. ALESION [Concomitant]
     Active Substance: EPINASTINE HYDROCHLORIDE
     Indication: PRODUCT USED FOR UNKNOWN INDICATION
     Dosage: 20 MG, UNK
     Route: 048
  4. MEDIPEACE [Concomitant]
     Active Substance: ETIZOLAM
     Indication: PROPHYLAXIS
     Dosage: 0.5 MG, QD
     Route: 048
  5. RENAGEL [Concomitant]
     Active Substance: SEVELAMER HYDROCHLORIDE
     Indication: PROPHYLAXIS
     Dosage: 500 MG, TID
     Route: 048
  6. GLIVEC [Suspect]
     Active Substance: IMATINIB MESYLATE
     Indication: CHRONIC MYELOID LEUKAEMIA
     Dosage: 300 MG, QD
     Route: 048
     Dates: start: 20081104, end: 20081201
  7. TAKEPRON [Concomitant]
     Active Substance: LANSOPRAZOLE
     Indication: PROPHYLAXIS
     Dosage: 15 MG, QD
     Route: 048
     Dates: start: 20081114
  8. GLIVEC [Suspect]
     Active Substance: IMATINIB MESYLATE
     Dosage: 200 MG, QD
     Route: 048
     Dates: start: 20081224
  9. CALTAN [Concomitant]
     Active Substance: CALCIUM CARBONATE
     Indication: PROPHYLAXIS
     Dosage: 1000 MG, TID
     Route: 048

REACTIONS (10)
  - Mesenteric panniculitis [Unknown]
  - Hyperkalaemia [Recovered/Resolved]
  - Myalgia [Unknown]
  - Acute abdomen [Recovered/Resolved]
  - Rash [Recovered/Resolved]
  - Blood creatine phosphokinase increased [Unknown]
  - Haematochezia [Unknown]
  - Colitis ischaemic [Recovering/Resolving]
  - Drug ineffective [Unknown]
  - Blood lactate dehydrogenase increased [Recovered/Resolved]

NARRATIVE: CASE EVENT DATE: 20081105
